FAERS Safety Report 13409960 (Version 1)
Quarter: 2017Q2

REPORT INFORMATION
  Report Type: Report from Study
  Country: US (occurrence: US)
  Receive Date: 20170406
  Receipt Date: 20170406
  Transmission Date: 20170830
  Serious: Yes (Other)
  Sender: FDA-Public Use
  Company Number: US-GILEAD-2017-0251860

PATIENT
  Age: 62 Year
  Sex: Female

DRUGS (4)
  1. AMBRISENTAN [Suspect]
     Active Substance: AMBRISENTAN
     Indication: PRODUCT USED FOR UNKNOWN INDICATION
     Dosage: 10 MG, QD
     Route: 065
  2. WARFARIN [Concomitant]
     Active Substance: WARFARIN
  3. UPTRAVI [Concomitant]
     Active Substance: SELEXIPAG
  4. ADCIRCA [Concomitant]
     Active Substance: TADALAFIL

REACTIONS (15)
  - Paraesthesia oral [Unknown]
  - Pulmonary congestion [Unknown]
  - Sneezing [Not Recovered/Not Resolved]
  - Lip swelling [Unknown]
  - Nasal congestion [Unknown]
  - Eye disorder [Unknown]
  - Throat irritation [Not Recovered/Not Resolved]
  - Upper respiratory tract congestion [Not Recovered/Not Resolved]
  - Pruritus [Unknown]
  - Lacrimation increased [Not Recovered/Not Resolved]
  - Rhinorrhoea [Not Recovered/Not Resolved]
  - Paraesthesia [Unknown]
  - Rash [Unknown]
  - Hypoaesthesia [Recovered/Resolved]
  - Lower respiratory tract congestion [Unknown]

NARRATIVE: CASE EVENT DATE: 20161228
